FAERS Safety Report 7044502-0 (Version None)
Quarter: 2010Q4

REPORT INFORMATION
  Report Type: 
  Country: None (occurrence: None)
  Receive Date: 20101014
  Receipt Date: 20101005
  Transmission Date: 20110411
  Serious: Yes (Other)
  Sender: FDA-Public Use
  Company Number: FR-JNJFOC-20101002406

PATIENT
  Sex: Female

DRUGS (1)
  1. TOPIRAMATE [Suspect]
     Indication: MIGRAINE WITHOUT AURA
     Route: 048

REACTIONS (3)
  - DEPRESSION [None]
  - DRUG ABUSE [None]
  - MIGRAINE [None]
